FAERS Safety Report 21189105 (Version 4)
Quarter: 2022Q4

REPORT INFORMATION
  Report Type: Other
  Country: JP (occurrence: JP)
  Receive Date: 20220809
  Receipt Date: 20221216
  Transmission Date: 20230113
  Serious: Yes (Death, Life-Threatening, Hospitalization, Other)
  Sender: FDA-Public Use
  Company Number: JP-ASTELLAS-2022JP006669

PATIENT
  Age: 56 Year
  Sex: Male

DRUGS (19)
  1. PADCEV [Suspect]
     Active Substance: ENFORTUMAB VEDOTIN-EJFV
     Indication: Transitional cell carcinoma
     Route: 041
     Dates: start: 20220426
  2. PADCEV [Suspect]
     Active Substance: ENFORTUMAB VEDOTIN-EJFV
     Route: 041
     Dates: start: 20220524, end: 20220621
  3. MIYA-BM [Concomitant]
     Active Substance: CLOSTRIDIUM BUTYRICUM SPORES STRAIN M-55
     Indication: Diarrhoea
     Route: 048
     Dates: start: 20220411, end: 20220705
  4. GLYCOSAMINOGLYCANS [Concomitant]
     Active Substance: GLYCOSAMINOGLYCANS
     Indication: Scab
     Dosage: UNK UNK, ONCE OR TWICE DAILY
     Route: 065
     Dates: start: 20220502, end: 20220511
  5. Rinderon [Concomitant]
     Indication: Scab
     Dosage: UNK UNK, ONCE OR TWICE DAILY
     Route: 065
     Dates: start: 20220502, end: 20220511
  6. EURAX [Concomitant]
     Active Substance: CROTAMITON
     Indication: Scab
     Dosage: UNK UNK, AS NEEDED, WHEN SYMPTOM WAS STRONG
     Route: 065
     Dates: start: 20220502, end: 20220511
  7. METRONIDAZOLE [Concomitant]
     Active Substance: METRONIDAZOLE
     Indication: Pyrexia
     Route: 042
     Dates: start: 20220504, end: 20220508
  8. CEFMETAZOLE SODIUM [Concomitant]
     Active Substance: CEFMETAZOLE SODIUM
     Indication: Pyrexia
     Route: 042
     Dates: start: 20220509, end: 20220613
  9. CEFMETAZOLE SODIUM [Concomitant]
     Active Substance: CEFMETAZOLE SODIUM
     Indication: Tremor
  10. Prostandin [Concomitant]
     Indication: Scab
     Dosage: UNK UNK, ONCE DAILY
     Route: 065
     Dates: start: 20220511, end: 20220621
  11. BETAMETHASONE DIPROPIONATE [Concomitant]
     Active Substance: BETAMETHASONE DIPROPIONATE
     Indication: Pruritus
     Dosage: UNK UNK, TWICE DAILY
     Route: 065
     Dates: start: 20220511, end: 20220516
  12. GLYCOSAMINOGLYCANS [Concomitant]
     Active Substance: GLYCOSAMINOGLYCANS
     Indication: Pruritus
     Dosage: UNK UNK, TWICE DAILY
     Route: 065
     Dates: start: 20220511, end: 20220516
  13. OLOPATADINE HYDROCHLORIDE [Concomitant]
     Active Substance: OLOPATADINE HYDROCHLORIDE
     Indication: Pruritus
     Route: 048
     Dates: start: 20220511, end: 20220629
  14. AMITRIPTYLINE [Concomitant]
     Active Substance: AMITRIPTYLINE
     Indication: Pain
     Route: 048
     Dates: start: 20220516, end: 20220606
  15. DIFLORASONE DIACETATE [Concomitant]
     Active Substance: DIFLORASONE DIACETATE
     Indication: Pruritus
     Dosage: UNK UNK, TWICE DAILY
     Route: 065
     Dates: start: 20220516, end: 20220621
  16. Azunol [Concomitant]
     Indication: Pruritus
     Dosage: UNK UNK, TWICE DAILY
     Route: 065
     Dates: start: 20220516, end: 20220621
  17. PETROLATUM [Concomitant]
     Active Substance: PETROLATUM
     Indication: Lip erosion
     Dosage: UNK UNK, ONCE OR TWICE DAILY
     Route: 065
     Dates: start: 20220517, end: 20220708
  18. ZINC OXIDE [Concomitant]
     Active Substance: ZINC OXIDE
     Indication: Scab
     Dosage: UNK UNK, ONCE OR TWICE DAILY
     Route: 065
     Dates: start: 20220527, end: 20220706
  19. AMPICILLIN SODIUM\SULBACTAM SODIUM [Concomitant]
     Active Substance: AMPICILLIN SODIUM\SULBACTAM SODIUM
     Indication: Pyrexia
     Route: 041
     Dates: start: 20220614, end: 20220704

REACTIONS (7)
  - Haemoglobin decreased [Not Recovered/Not Resolved]
  - Scab [Not Recovered/Not Resolved]
  - Tremor [Recovered/Resolved]
  - Pruritus [Recovering/Resolving]
  - Pyrexia [Not Recovered/Not Resolved]
  - Lip erosion [Not Recovered/Not Resolved]
  - Malignant neoplasm progression [Fatal]

NARRATIVE: CASE EVENT DATE: 20220502
